FAERS Safety Report 5196536-9 (Version None)
Quarter: 2006Q4

REPORT INFORMATION
  Report Type: 
  Country: None (occurrence: None)
  Receive Date: 20061227
  Receipt Date: 20061206
  Transmission Date: 20070319
  Serious: Yes (Hospitalization)
  Sender: FDA-Public Use
  Company Number: L06-ITA-05287-01

PATIENT
  Age: 40 Year
  Sex: Male

DRUGS (4)
  1. ELOPRAM COMPRESSE (CITALOPRAM) [Suspect]
     Indication: MAJOR DEPRESSION
     Dosage: 20 MG QD PO
     Route: 048
     Dates: start: 20030201
  2. ELOPRAM COMPRESSE (CITALOPRAM) [Suspect]
     Indication: MAJOR DEPRESSION
     Dosage: 40 MG QD PO
     Route: 048
     Dates: start: 19990101, end: 20010101
  3. RISPERIDONE [Suspect]
     Indication: MAJOR DEPRESSION
     Dosage: 6 MG QD
     Dates: start: 20030201
  4. RISPERIDONE [Suspect]
     Indication: MAJOR DEPRESSION
     Dosage: 3 MG QD
     Dates: start: 19990101, end: 20010101

REACTIONS (4)
  - DRUG INEFFECTIVE [None]
  - NEUROLEPTIC MALIGNANT SYNDROME [None]
  - URINARY INCONTINENCE [None]
  - URINARY TRACT INFECTION [None]
